FAERS Safety Report 13603478 (Version 2)
Quarter: 2017Q2

REPORT INFORMATION
  Report Type: Report from Study
  Country: None (occurrence: JP)
  Receive Date: 20170601
  Receipt Date: 20170609
  Transmission Date: 20170830
  Serious: Yes (Other)
  Sender: FDA-Public Use
  Company Number: JP-ABBVIE-17P-087-1989055-00

PATIENT
  Sex: Female

DRUGS (1)
  1. VIEKIRAX [Suspect]
     Active Substance: OMBITASVIR\PARITAPREVIR\RITONAVIR
     Indication: HEPATITIS C
     Dosage: VIEKIRAX WAS ADMINISTERED EVERY MORNING.
     Route: 048
     Dates: start: 20161006

REACTIONS (2)
  - Drug dose omission [Recovered/Resolved]
  - Neoplasm malignant [Not Recovered/Not Resolved]
